FAERS Safety Report 11749232 (Version 1)
Quarter: 2015Q4

REPORT INFORMATION
  Report Type: Spontaneous
  Country: US (occurrence: None)
  Receive Date: 20151116
  Receipt Date: 20151116
  Transmission Date: 20160304
  Serious: Yes (Hospitalization)
  Sender: FDA-Public Use
  Company Number: None

PATIENT
  Age: 16 Year
  Sex: Male
  Weight: 59 kg

DRUGS (7)
  1. CYTARABINE. [Suspect]
     Active Substance: CYTARABINE
     Dates: end: 20150818
  2. CYCLOPHOSPHAMIDE. [Suspect]
     Active Substance: CYCLOPHOSPHAMIDE
     Dates: end: 20150819
  3. METHOTREXATE [Suspect]
     Active Substance: METHOTREXATE
     Dates: end: 20150817
  4. DOXORUBICIN HYDROCHLORIDE. [Suspect]
     Active Substance: DOXORUBICIN HYDROCHLORIDE
     Dates: end: 20150818
  5. PREDNISONE. [Suspect]
     Active Substance: PREDNISONE
     Dates: end: 20150822
  6. HYDROCORTISONE. [Suspect]
     Active Substance: HYDROCORTISONE
     Dates: end: 20150818
  7. VINCRISTINE SULFATE. [Suspect]
     Active Substance: VINCRISTINE SULFATE
     Dates: end: 20150817

REACTIONS (17)
  - Febrile neutropenia [None]
  - Cardiomegaly [None]
  - Troponin increased [None]
  - Visual acuity reduced [None]
  - Acute kidney injury [None]
  - Ecthyma [None]
  - Rhinorrhoea [None]
  - Ischaemia [None]
  - Acute prerenal failure [None]
  - Staphylococcal bacteraemia [None]
  - Dysstasia [None]
  - Cough [None]
  - Pseudomonal bacteraemia [None]
  - Myalgia [None]
  - Rash generalised [None]
  - Wound secretion [None]
  - Septic shock [None]

NARRATIVE: CASE EVENT DATE: 20150830
